FAERS Safety Report 25364885 (Version 1)
Quarter: 2025Q2

REPORT INFORMATION
  Report Type: Spontaneous
  Country: PL (occurrence: None)
  Receive Date: 20250527
  Receipt Date: 20250527
  Transmission Date: 20250716
  Serious: Yes (Other)
  Sender: INCYTE
  Company Number: PL-002147023-NVSC2025PL082782

PATIENT
  Age: 76 Year

DRUGS (2)
  1. RUXOLITINIB [Suspect]
     Active Substance: RUXOLITINIB
     Indication: Polycythaemia vera
     Dosage: 10 MG, BID
     Route: 065
  2. RUXOLITINIB [Suspect]
     Active Substance: RUXOLITINIB
     Route: 065

REACTIONS (8)
  - Carotid artery stenosis [Unknown]
  - Hepatic cyst [Unknown]
  - Mesenteric artery stenosis [Unknown]
  - Laboratory test abnormal [Unknown]
  - Retinal artery occlusion [Unknown]
  - Neoplasm prostate [Unknown]
  - Laryngeal mass [Unknown]
  - Hepatic lesion [Unknown]
